FAERS Safety Report 10595763 (Version 2)
Quarter: 2015Q1

REPORT INFORMATION
  Report Type: Spontaneous
  Country: US (occurrence: US)
  Receive Date: 20141120
  Receipt Date: 20150217
  Transmission Date: 20150720
  Serious: No
  Sender: FDA-Public Use
  Company Number: US-AMARIN PHARMA, INC.-2014AMR000082

PATIENT
  Age: 76 Year
  Sex: Female
  Weight: 54.48 kg

DRUGS (1)
  1. VASCEPA [Suspect]
     Active Substance: ETHYL ICOSAPENTATE
     Indication: BLOOD TRIGLYCERIDES INCREASED
     Route: 065
     Dates: start: 201409

REACTIONS (3)
  - Oropharyngeal pain [Unknown]
  - Intentional product misuse [Unknown]
  - Intraocular pressure increased [Unknown]
